FAERS Safety Report 10748469 (Version 1)
Quarter: 2015Q1

REPORT INFORMATION
  Report Type: Spontaneous
  Country: US (occurrence: None)
  Receive Date: 20150128
  Receipt Date: 20150128
  Transmission Date: 20150721
  Serious: No
  Sender: FDA-Public Use
  Company Number: None

PATIENT
  Sex: Female

DRUGS (1)
  1. PAXIL [Suspect]
     Active Substance: PAROXETINE HYDROCHLORIDE
     Dosage: 40 MILLIGRAM BOTTLE
     Dates: start: 201406, end: 201406

REACTIONS (5)
  - Suicidal ideation [None]
  - Decreased appetite [None]
  - Hallucination [None]
  - Insomnia [None]
  - Drug withdrawal syndrome [None]

NARRATIVE: CASE EVENT DATE: 201406
